FAERS Safety Report 18510519 (Version 1)
Quarter: 2020Q4

REPORT INFORMATION
  Report Type: Spontaneous
  Country: FR (occurrence: FR)
  Receive Date: 20201117
  Receipt Date: 20201117
  Transmission Date: 20210114
  Serious: Yes (Life-Threatening, Hospitalization)
  Sender: FDA-Public Use
  Company Number: FR-TEVA-2020-FR-1848552

PATIENT
  Age: 36 Year
  Sex: Male
  Weight: 44.6 kg

DRUGS (13)
  1. ONCOVIN [Suspect]
     Active Substance: VINCRISTINE SULFATE
     Indication: BURKITT^S LYMPHOMA
     Dosage: 1.4 MG
     Route: 042
     Dates: start: 20191205, end: 20191205
  2. PREDNISONE. [Suspect]
     Active Substance: PREDNISONE
     Indication: BURKITT^S LYMPHOMA
     Dosage: 40 MG
     Route: 048
     Dates: start: 20191205, end: 20191209
  3. TRIATEC [RAMIPRIL] [Concomitant]
     Active Substance: RAMIPRIL
  4. ENDOXAN [Suspect]
     Active Substance: CYCLOPHOSPHAMIDE
     Indication: BURKITT^S LYMPHOMA
     Dosage: 750 MG
     Route: 042
     Dates: start: 20191205, end: 20191205
  5. CALCIDIA [Concomitant]
     Active Substance: CALCIUM CARBONATE
  6. URAPIDIL [Concomitant]
     Active Substance: URAPIDIL
  7. BISOCE [Concomitant]
     Active Substance: BISOPROLOL
  8. METHOTREXATE. [Suspect]
     Active Substance: METHOTREXATE
     Indication: BURKITT^S LYMPHOMA
     Route: 037
     Dates: start: 20200121, end: 20200121
  9. TOCO [Concomitant]
     Active Substance: .ALPHA.-TOCOPHEROL ACETATE, D-
  10. CREON [Concomitant]
     Active Substance: PANCRELIPASE AMYLASE\PANCRELIPASE LIPASE\PANCRELIPASE PROTEASE
  11. MABTHERA [Suspect]
     Active Substance: RITUXIMAB
     Indication: BURKITT^S LYMPHOMA
     Dosage: 375 MG
     Route: 042
     Dates: start: 20191205, end: 20191205
  12. ADRIBLASTINE [Suspect]
     Active Substance: DOXORUBICIN
     Indication: BURKITT^S LYMPHOMA
     Dosage: 50 MG
     Route: 042
     Dates: start: 20191205, end: 20191205
  13. ASPIRINE [Concomitant]
     Active Substance: ASPIRIN

REACTIONS (1)
  - Pneumonia [Recovered/Resolved]

NARRATIVE: CASE EVENT DATE: 20191211
